FAERS Safety Report 20191903 (Version 20)
Quarter: 2024Q2

REPORT INFORMATION
  Report Type: Spontaneous
  Country: CA (occurrence: CA)
  Receive Date: 20211216
  Receipt Date: 20240517
  Transmission Date: 20240716
  Serious: Yes (Other)
  Sender: FDA-Public Use
  Company Number: CA-CELLTRION INC.-2021CA015246

PATIENT

DRUGS (29)
  1. INFLECTRA [Suspect]
     Active Substance: INFLIXIMAB-DYYB
     Indication: Crohn^s disease
     Dosage: 275 MG/Q 0, 2, 6 THEN EVERY 8 WEEKS
     Route: 042
     Dates: start: 20180626, end: 20180808
  2. INFLECTRA [Suspect]
     Active Substance: INFLIXIMAB-DYYB
     Dosage: 7 MG/KG, EVERY 6 WEEK
     Route: 042
     Dates: start: 20180919, end: 20190305
  3. INFLECTRA [Suspect]
     Active Substance: INFLIXIMAB-DYYB
     Dosage: 7 MG/KG, EVERY 6 WEEK
     Route: 042
     Dates: start: 20190416
  4. INFLECTRA [Suspect]
     Active Substance: INFLIXIMAB-DYYB
     Dosage: 400 MG
     Route: 042
     Dates: start: 20210803
  5. INFLECTRA [Suspect]
     Active Substance: INFLIXIMAB-DYYB
     Dosage: 400 MG
     Route: 042
     Dates: start: 20211025
  6. INFLECTRA [Suspect]
     Active Substance: INFLIXIMAB-DYYB
     Dosage: 400 MG
     Route: 042
     Dates: start: 20211025
  7. INFLECTRA [Suspect]
     Active Substance: INFLIXIMAB-DYYB
     Dosage: 410 MG (7 MG/KG), EVERY 6 WEEKS
     Route: 042
     Dates: start: 20211206
  8. INFLECTRA [Suspect]
     Active Substance: INFLIXIMAB-DYYB
     Dosage: 7 MG/KG, EVERY 6 WEEKS
     Route: 042
     Dates: start: 20220117
  9. INFLECTRA [Suspect]
     Active Substance: INFLIXIMAB-DYYB
     Dosage: 7 MG/KG, EVERY 6 WEEKS
     Route: 042
     Dates: start: 20220413
  10. INFLECTRA [Suspect]
     Active Substance: INFLIXIMAB-DYYB
     Dosage: 7 MG/KG, EVERY 6 WEEKS
     Route: 042
     Dates: start: 20220525
  11. INFLECTRA [Suspect]
     Active Substance: INFLIXIMAB-DYYB
     Dosage: 7MG/KG, EVERY 6 WEEKS
     Route: 042
     Dates: start: 20220705
  12. INFLECTRA [Suspect]
     Active Substance: INFLIXIMAB-DYYB
     Dosage: 7MG/KG, EVERY 6 WEEKS
     Route: 042
     Dates: start: 20220817, end: 20220817
  13. INFLECTRA [Suspect]
     Active Substance: INFLIXIMAB-DYYB
     Dosage: 7MG/KG, EVERY 6 WEEKS
     Route: 042
     Dates: start: 20220927
  14. INFLECTRA [Suspect]
     Active Substance: INFLIXIMAB-DYYB
     Dosage: 7 MG/KG EVERY 6 WEEKS
     Route: 042
     Dates: start: 20221107, end: 20221107
  15. INFLECTRA [Suspect]
     Active Substance: INFLIXIMAB-DYYB
     Dosage: 7 MG/KG EVERY 6 WEEKS
     Route: 042
     Dates: start: 20221219, end: 20221219
  16. INFLECTRA [Suspect]
     Active Substance: INFLIXIMAB-DYYB
     Dosage: 7 MG/KG  (462MG) EVERY 6 WEEKS
     Route: 042
     Dates: start: 20230130, end: 20230130
  17. INFLECTRA [Suspect]
     Active Substance: INFLIXIMAB-DYYB
     Dosage: 7 MG/KG  (455MG) EVERY 6 WEEKS
     Route: 042
     Dates: start: 20230313, end: 20230313
  18. INFLECTRA [Suspect]
     Active Substance: INFLIXIMAB-DYYB
     Dosage: 7.1 MG/KG  (455MG) EVERY 6 WEEKS
     Route: 042
     Dates: start: 20230426, end: 20230426
  19. INFLECTRA [Suspect]
     Active Substance: INFLIXIMAB-DYYB
     Dosage: 7 MG/KG  (448MG) EVERY 6 WEEKS
     Route: 042
     Dates: start: 20230607
  20. INFLECTRA [Suspect]
     Active Substance: INFLIXIMAB-DYYB
     Dosage: 7 MG/KG, EVERY 6 WEEKS
     Route: 042
     Dates: start: 20230830
  21. INFLECTRA [Suspect]
     Active Substance: INFLIXIMAB-DYYB
     Dosage: 467 MG, AFTER 6 WEEKS
     Route: 042
     Dates: start: 20231011
  22. INFLECTRA [Suspect]
     Active Substance: INFLIXIMAB-DYYB
     Dosage: 7 MG/KG, (483 MG) EVERY 6 WEEK
     Route: 042
     Dates: start: 20231122
  23. INFLECTRA [Suspect]
     Active Substance: INFLIXIMAB-DYYB
     Dosage: 7 MG/KG, EVERY 6 WEEK (490 MG, EVERY 6  WEEKS)
     Route: 042
     Dates: start: 20240102
  24. INFLECTRA [Suspect]
     Active Substance: INFLIXIMAB-DYYB
     Dosage: 6.9 MG/KG (490 MG), EVERY 6 WEEK
     Route: 042
     Dates: start: 20240214
  25. INFLECTRA [Suspect]
     Active Substance: INFLIXIMAB-DYYB
     Dosage: 7 MG/KG (490 MG), EVERY 6 WEEKS
     Route: 042
     Dates: start: 20240327
  26. INFLECTRA [Suspect]
     Active Substance: INFLIXIMAB-DYYB
     Dosage: 7 MG/KG EVERY 6 WEEKS (490 MG)
     Route: 042
     Dates: start: 20240508
  27. ALESSE 28 [Concomitant]
     Active Substance: ETHINYL ESTRADIOL\LEVONORGESTREL
     Dosage: UNK
  28. PENTASA [Concomitant]
     Active Substance: MESALAMINE
     Dosage: UNK
  29. PENTASA [Concomitant]
     Active Substance: MESALAMINE
     Dosage: 1 DF, DOSAGE NOT AVAILABLE
     Route: 065
     Dates: start: 201804

REACTIONS (14)
  - Weight increased [Not Recovered/Not Resolved]
  - Uveitis [Recovered/Resolved]
  - Rectal abscess [Unknown]
  - Condition aggravated [Recovered/Resolved]
  - Rectal discharge [Not Recovered/Not Resolved]
  - Abscess [Recovered/Resolved]
  - Liver disorder [Unknown]
  - Arthralgia [Recovered/Resolved]
  - Heart rate decreased [Recovered/Resolved]
  - Fistula [Recovered/Resolved]
  - COVID-19 [Unknown]
  - Off label use [Unknown]
  - Off label use [Unknown]
  - Intentional product use issue [Unknown]

NARRATIVE: CASE EVENT DATE: 20180919
